FAERS Safety Report 14937812 (Version 3)
Quarter: 2018Q2

REPORT INFORMATION
  Report Type: Spontaneous
  Country: AU (occurrence: AU)
  Receive Date: 20180525
  Receipt Date: 20180604
  Transmission Date: 20180711
  Serious: Yes (Disabling)
  Sender: FDA-Public Use
  Company Number: AU-CONCORDIA PHARMACEUTICALS INC.-GSH201805-001749

PATIENT
  Age: 58 Year
  Sex: Female

DRUGS (7)
  1. ATORVASTATIN [Concomitant]
     Active Substance: ATORVASTATIN
  2. FLUTICASONE SALMETEROL [Concomitant]
     Active Substance: FLUTICASONE PROPIONATE\SALMETEROL XINAFOATE
  3. TELMISARTAN. [Concomitant]
     Active Substance: TELMISARTAN
  4. TIOTROPIUM BROMIDE [Concomitant]
     Active Substance: TIOTROPIUM BROMIDE
  5. HYDROXYCHLOROQUINE [Suspect]
     Active Substance: HYDROXYCHLOROQUINE
     Indication: LICHEN SCLEROSUS
     Dosage: 7.5 MG/KG ACTUAL BODYWEIGHT
     Route: 065
     Dates: start: 1996, end: 2002
  6. HYDROXYCHLOROQUINE [Suspect]
     Active Substance: HYDROXYCHLOROQUINE
     Route: 065
     Dates: start: 2004, end: 2007
  7. METHOTREXATE. [Concomitant]
     Active Substance: METHOTREXATE

REACTIONS (8)
  - Overdose [Not Recovered/Not Resolved]
  - Visual field defect [Not Recovered/Not Resolved]
  - Maculopathy [Not Recovered/Not Resolved]
  - Macular degeneration [Not Recovered/Not Resolved]
  - Retinal toxicity [Not Recovered/Not Resolved]
  - Off label use [Not Recovered/Not Resolved]
  - Visual acuity reduced [Not Recovered/Not Resolved]
  - Maculopathy [Not Recovered/Not Resolved]

NARRATIVE: CASE EVENT DATE: 2002
